FAERS Safety Report 19226446 (Version 1)
Quarter: 2021Q2

REPORT INFORMATION
  Report Type: Report from Study
  Country: JP (occurrence: JP)
  Receive Date: 20210505
  Receipt Date: 20210505
  Transmission Date: 20210717
  Serious: Yes (Hospitalization, Congenital Anomaly, Other)
  Sender: FDA-Public Use
  Company Number: JP-JNJFOC-20210454596

PATIENT
  Age: 0 Day
  Sex: Female
  Weight: 1.91 kg

DRUGS (12)
  1. FERROUS SULFATE. [Concomitant]
     Active Substance: FERROUS SULFATE
     Indication: ANAEMIA
     Route: 064
     Dates: start: 20180523
  2. LOCAL ANESTHETICS [Concomitant]
     Active Substance: UNSPECIFIED INGREDIENT
     Indication: ANAESTHESIA PROCEDURE
     Dosage: DOSE UNKNOWN
     Route: 029
  3. PREZISTANAIVE [Suspect]
     Active Substance: DARUNAVIR
     Indication: HIV INFECTION
     Route: 064
     Dates: start: 20180614
  4. TRUVADA [Concomitant]
     Active Substance: EMTRICITABINE\TENOFOVIR DISOPROXIL FUMARATE
     Indication: HIV INFECTION
     Route: 064
     Dates: start: 20180614
  5. NORVIR [Concomitant]
     Active Substance: RITONAVIR
     Route: 065
     Dates: start: 20180614
  6. UTEMERIN [Concomitant]
     Active Substance: RITODRINE
     Route: 064
     Dates: start: 20180614
  7. ZITHROMAC [Concomitant]
     Active Substance: AZITHROMYCIN DIHYDRATE
     Indication: CHLAMYDIAL CERVICITIS
     Route: 064
     Dates: start: 20180509
  8. TRUVADA [Concomitant]
     Active Substance: EMTRICITABINE\TENOFOVIR DISOPROXIL FUMARATE
     Route: 065
     Dates: start: 20180614
  9. XYZAL [Concomitant]
     Active Substance: LEVOCETIRIZINE DIHYDROCHLORIDE
     Indication: DERMATITIS ALLERGIC
     Route: 065
     Dates: start: 20180614
  10. LOCAL ANESTHETICS [Concomitant]
     Active Substance: UNSPECIFIED INGREDIENT
     Dosage: DOSE UNKNOWN
     Route: 008
  11. PREZISTANAIVE [Suspect]
     Active Substance: DARUNAVIR
     Route: 065
     Dates: start: 20180614
  12. NORVIR [Concomitant]
     Active Substance: RITONAVIR
     Indication: HIV INFECTION
     Route: 064
     Dates: start: 20180614

REACTIONS (5)
  - Ventricular septal defect [Not Recovered/Not Resolved]
  - Low birth weight baby [Unknown]
  - Foetal exposure during pregnancy [Recovered/Resolved]
  - Pulmonary artery stenosis [Recovering/Resolving]
  - Hyperbilirubinaemia neonatal [Recovered/Resolved]

NARRATIVE: CASE EVENT DATE: 20180614
